FAERS Safety Report 7042130-4 (Version None)
Quarter: 2010Q4

REPORT INFORMATION
  Report Type: 
  Country: None (occurrence: None)
  Receive Date: 20101013
  Receipt Date: 20100503
  Transmission Date: 20110411
  Serious: No
  Sender: FDA-Public Use
  Company Number: US-ASTRAZENECA-2010SE19952

PATIENT
  Sex: Male
  Weight: 83.9 kg

DRUGS (12)
  1. SYMBICORT [Suspect]
     Indication: CHRONIC OBSTRUCTIVE PULMONARY DISEASE
     Route: 055
     Dates: start: 20100401
  2. HYDROCHLOROTHIAZIDE [Concomitant]
  3. VITAMIN B12 INJECTIONS [Concomitant]
  4. ZOLPIDEM [Concomitant]
     Indication: INSOMNIA
  5. SIMVUSTATIN [Concomitant]
  6. DICLOFENAC SODIUM [Concomitant]
  7. ASPIRIN [Concomitant]
  8. AMLODIPINE BESYLATE [Concomitant]
  9. OCUVITE SUPPLEMENT [Concomitant]
  10. PROPANOLOL HCL [Concomitant]
  11. TRAVAOST OPTHALMIC SOLUTION [Concomitant]
  12. DUTASTERIDE [Concomitant]

REACTIONS (1)
  - PROSTATIC SPECIFIC ANTIGEN INCREASED [None]
